FAERS Safety Report 21987015 (Version 2)
Quarter: 2023Q4

REPORT INFORMATION
  Report Type: Report from Study
  Country: JP (occurrence: JP)
  Receive Date: 20230213
  Receipt Date: 20231005
  Transmission Date: 20240110
  Serious: Yes (Other)
  Sender: FDA-Public Use
  Company Number: JP-BRISTOL-MYERS SQUIBB COMPANY-2022-073753

PATIENT
  Age: 70 Year
  Sex: Female
  Weight: 62.8 kg

DRUGS (1)
  1. BREYANZI [Suspect]
     Active Substance: LISOCABTAGENE MARALEUCEL
     Indication: Diffuse large B-cell lymphoma
     Route: 041
     Dates: start: 20220628, end: 20220628

REACTIONS (4)
  - Cytokine release syndrome [Recovered/Resolved]
  - Alanine aminotransferase increased [Recovered/Resolved]
  - Hypogammaglobulinaemia [Not Recovered/Not Resolved]
  - COVID-19 [Recovered/Resolved]

NARRATIVE: CASE EVENT DATE: 20220630
